FAERS Safety Report 6376932-4 (Version None)
Quarter: 2009Q3

REPORT INFORMATION
  Report Type: 
  Country: None (occurrence: None)
  Receive Date: 20090925
  Receipt Date: 20090916
  Transmission Date: 20100115
  Serious: Yes (Other)
  Sender: FDA-Public Use
  Company Number: US-PFIZER INC-2009271142

PATIENT
  Sex: Female
  Weight: 70 kg

DRUGS (8)
  1. PROVERA [Suspect]
     Indication: HORMONE REPLACEMENT THERAPY
     Dosage: 2.5 MG, UNK
     Dates: start: 19930101, end: 19970101
  2. PREMARIN [Suspect]
     Indication: HORMONE REPLACEMENT THERAPY
     Dosage: 0.625 MG, UNK
     Dates: start: 19930101, end: 19970101
  3. PREMPRO [Suspect]
     Indication: HORMONE REPLACEMENT THERAPY
     Dosage: 0.625 MG
     Dates: start: 19970101, end: 19990101
  4. CARDIZEM [Concomitant]
     Indication: CARDIAC DISORDER
     Dosage: UNK
     Dates: start: 19900101
  5. ZOCOR [Concomitant]
     Indication: CARDIAC DISORDER
     Dosage: UNK
     Dates: start: 19900101
  6. PAXIL [Concomitant]
     Indication: ANXIETY
     Dosage: UNK
  7. CELEBREX [Concomitant]
     Indication: ARTHRITIS
     Dosage: UNK
  8. OTHER RESPIRATORY SYSTEM PRODUCTS [Concomitant]
     Indication: CHRONIC OBSTRUCTIVE PULMONARY DISEASE
     Dosage: UNK

REACTIONS (1)
  - BREAST CANCER [None]
